FAERS Safety Report 6898131-X (Version None)
Quarter: 2010Q3

REPORT INFORMATION
  Report Type: 
  Country: None (occurrence: None)
  Receive Date: 20100802
  Receipt Date: 20070831
  Transmission Date: 20110219
  Serious: Yes (Other)
  Sender: FDA-Public Use
  Company Number: US-PFIZER INC-2007073089

PATIENT
  Sex: Female
  Weight: 69.4 kg

DRUGS (2)
  1. LYRICA [Suspect]
     Indication: NEUROPATHY PERIPHERAL
     Dates: start: 20070101, end: 20070830
  2. CRESTOR [Concomitant]

REACTIONS (1)
  - PRURITUS GENERALISED [None]
